FAERS Safety Report 4308459-5 (Version None)
Quarter: 2004Q1

REPORT INFORMATION
  Report Type: 
  Country: None (occurrence: None)
  Receive Date: 20040301
  Receipt Date: 20040209
  Transmission Date: 20041129
  Serious: Yes (Death, Life-Threatening, Hospitalization)
  Sender: FDA-Public Use
  Company Number: US-ROCHE-358442

PATIENT
  Age: 63 Year
  Sex: Female
  Weight: 68 kg

DRUGS (38)
  1. CAPECITABINE [Suspect]
     Indication: COLORECTAL CANCER
     Dosage: ACTUAL DOSE RECEIVED WAS 1800 MG BID GIVEN FROM DAY 1 TO DAY 14 OF A THREE WEEK CYCLE.
     Route: 048
     Dates: start: 20040120, end: 20040203
  2. OXALIPLATIN [Suspect]
     Indication: COLORECTAL CANCER
     Dosage: ACTUAL DOSE RECEIVED WAS 233 MG.
     Route: 042
     Dates: start: 20040120, end: 20040120
  3. WELLBUTRIN [Concomitant]
     Dosage: BASELINE MED.
  4. PROZAC [Concomitant]
     Dosage: BASELINE MED.
     Dates: start: 20040206, end: 20040211
  5. LEVOTHYROID [Concomitant]
     Dosage: BASELINE MED.
     Dates: start: 20040206, end: 20040218
  6. CALTRATE [Concomitant]
     Dosage: BASELINE MED.
  7. COUMADIN [Concomitant]
     Dosage: BASELINE MED.
  8. UNKNOWN DRUG [Concomitant]
     Dosage: BASELINE MED.
  9. PROTONIX [Concomitant]
     Dates: start: 20040206, end: 20040219
  10. ACETAMINOPHEN [Concomitant]
     Dates: start: 20040206, end: 20040217
  11. TEMAZEPAM [Concomitant]
     Dates: start: 20040211, end: 20040211
  12. CIPRO [Concomitant]
     Dates: start: 20040207, end: 20040211
  13. ZOFRAN [Concomitant]
     Dates: start: 20040207, end: 20040218
  14. AMBIEN [Concomitant]
     Dates: start: 20040208
  15. HALDOL [Concomitant]
     Dates: start: 20040209
  16. ATIVAN [Concomitant]
     Dates: start: 20040209, end: 20040213
  17. RISPERDAL [Concomitant]
     Dates: start: 20040210, end: 20040218
  18. SANDOSTATIN [Concomitant]
     Dates: start: 20040210, end: 20040218
  19. VITAMIN K TAB [Concomitant]
     Route: 050
     Dates: start: 20040211
  20. HEPARIN SODIUM [Concomitant]
     Dates: start: 20040213
  21. THIAMINE [Concomitant]
     Dates: start: 20040213, end: 20040220
  22. FLAGYL [Concomitant]
     Dates: start: 20040217
  23. PROMETHAZINE [Concomitant]
     Dates: start: 20040206, end: 20040207
  24. ZOLPIDEM TARTRATE [Concomitant]
     Dates: start: 20040208, end: 20040218
  25. MOUTHWASH [Concomitant]
     Dates: start: 20040206, end: 20040218
  26. MULTI-VITAMIN [Concomitant]
     Dates: start: 20040207, end: 20040218
  27. NORMAL SALINE W POTASSIUM CHLORIDE [Concomitant]
     Dates: start: 20040210, end: 20040218
  28. MORPHINE SULFATE [Concomitant]
     Dates: start: 20040215, end: 20040219
  29. LOPERAMIDE HCL [Concomitant]
     Dates: start: 20040210, end: 20040218
  30. METRONIDAZOLE [Concomitant]
     Dates: start: 20040217, end: 20040220
  31. MAALOX [Concomitant]
     Dates: start: 20040218, end: 20040219
  32. ETOMIDATE [Concomitant]
     Dates: start: 20040219, end: 20040219
  33. FENTANYL CITRATE [Concomitant]
     Dates: start: 20040219, end: 20040220
  34. HETASTARCH/SODIUM CHLORIDE [Concomitant]
     Dates: start: 20040219, end: 20040220
  35. IPRATROPIUM BROMIDE [Concomitant]
     Dates: start: 20040219, end: 20040220
  36. LEVALBUTEROL [Concomitant]
     Dates: start: 20040219, end: 20040220
  37. MIDAZOLAM HCL [Concomitant]
     Dates: start: 20040219, end: 20040220
  38. SODIUM BICARBONATE [Concomitant]
     Dates: start: 20040219, end: 20040220

REACTIONS (19)
  - ACIDOSIS [None]
  - AGITATION [None]
  - AMMONIA INCREASED [None]
  - BELLIGERENCE [None]
  - CANDIDIASIS [None]
  - CIRCULATORY COLLAPSE [None]
  - CONFUSIONAL STATE [None]
  - DEHYDRATION [None]
  - DIARRHOEA [None]
  - DISORIENTATION [None]
  - ENCEPHALOPATHY [None]
  - HYPOTENSION [None]
  - ILEUS [None]
  - MUCOSAL INFLAMMATION [None]
  - NAUSEA [None]
  - RENAL FAILURE [None]
  - SEPSIS [None]
  - SEPTIC SHOCK [None]
  - VOMITING [None]
